FAERS Safety Report 7591096-7 (Version None)
Quarter: 2011Q3

REPORT INFORMATION
  Report Type: 
  Country: None (occurrence: None)
  Receive Date: 20110705
  Receipt Date: 20110629
  Transmission Date: 20111222
  Serious: Yes (Life-Threatening, Hospitalization)
  Sender: FDA-Public Use
  Company Number: BR-ASTRAZENECA-2011SE39597

PATIENT
  Age: 84 Year
  Sex: Female
  Weight: 66 kg

DRUGS (8)
  1. CRESTOR [Suspect]
     Route: 048
     Dates: end: 20110601
  2. CRESTOR [Suspect]
     Route: 048
  3. PLAVIX [Concomitant]
     Route: 048
  4. METOPROLOL SUCCINATE [Suspect]
     Route: 048
     Dates: start: 20050101, end: 20101101
  5. DIOVAN [Concomitant]
     Route: 048
  6. JANUVIA [Concomitant]
     Route: 048
  7. SUSTRATE [Concomitant]
     Route: 048
  8. DIAMICRON [Concomitant]
     Route: 048

REACTIONS (3)
  - CARDIAC ARREST [None]
  - ANGIOPLASTY [None]
  - DYSPNOEA [None]
